FAERS Safety Report 8447004-X (Version None)
Quarter: 2012Q2

REPORT INFORMATION
  Report Type: 
  Country: None (occurrence: None)
  Receive Date: 20120619
  Receipt Date: 20120615
  Transmission Date: 20120825
  Serious: Yes (Other)
  Sender: FDA-Public Use
  Company Number: US-BAYER-2012-059985

PATIENT
  Age: 45 Year
  Sex: Female
  Weight: 61.224 kg

DRUGS (8)
  1. VICODIN ES [Concomitant]
  2. STOOL SOFTENER [Concomitant]
  3. CELEXA [Concomitant]
     Dosage: 10 MG, UNK
  4. XANAX XR [Concomitant]
     Dosage: 0.5 MG, UNK
  5. BETASERON [Suspect]
     Dosage: 0.25 MG, QOD
     Route: 058
     Dates: end: 20120607
  6. BACTRIM [Concomitant]
  7. MYLANTA [ALUMINIUM HYDROXIDE,MAGNESIUM HYDROXIDE,SIMETICONE] [Concomitant]
  8. NEURONTIN [Concomitant]
     Dosage: 300 MG, UNK

REACTIONS (1)
  - HEPATITIS C [None]
